FAERS Safety Report 9601271 (Version 2)
Quarter: 2013Q4

REPORT INFORMATION
  Report Type: Report from Study
  Country: MX (occurrence: MX)
  Receive Date: 20131006
  Receipt Date: 20131006
  Transmission Date: 20140711
  Serious: Yes (Other)
  Sender: FDA-Public Use
  Company Number: PHHY2010MX06003

PATIENT
  Age: 28 Year
  Sex: Female
  Weight: 90 kg

DRUGS (4)
  1. EXFORGE [Suspect]
     Indication: HYPERTENSION
     Dosage: 1 DF (160/10MG), PER DAY
     Dates: start: 201001, end: 20100123
  2. METFORMIN [Suspect]
     Indication: DIABETES MELLITUS
     Dosage: 850 MG, UNK
  3. RASILEZ (ALISKIREN) [Concomitant]
     Indication: HYPERTENSION
     Dosage: 1 DF, (150 MG) PER DAY
     Dates: start: 20100108, end: 20100123
  4. GALVUS MET [Concomitant]
     Indication: DIABETES MELLITUS
     Dosage: 2 DF, (50/500 MG) PER DAY
     Dates: start: 20100109, end: 20100123

REACTIONS (5)
  - Gestational diabetes [Unknown]
  - Premature labour [Unknown]
  - Blood pressure increased [Unknown]
  - Maternal exposure during pregnancy [Not Recovered/Not Resolved]
  - Normal newborn [Unknown]
